FAERS Safety Report 24008075 (Version 2)
Quarter: 2024Q3

REPORT INFORMATION
  Report Type: Spontaneous
  Country: US (occurrence: US)
  Receive Date: 20240625
  Receipt Date: 20240709
  Transmission Date: 20241016
  Serious: Yes (Other)
  Sender: CHURCH & DWIGHT
  Company Number: US-ChurchDwight-2024-CDW-00957

PATIENT
  Sex: Female

DRUGS (1)
  1. ORAJEL MAXIMUM STRENGTH (BENZOCAINE) [Suspect]
     Active Substance: BENZOCAINE
     Indication: Aphthous ulcer
     Route: 002
     Dates: start: 202405

REACTIONS (3)
  - Methaemoglobinaemia [Unknown]
  - Fatigue [Unknown]
  - Intentional product misuse [Unknown]
